FAERS Safety Report 8060218-6 (Version None)
Quarter: 2012Q1

REPORT INFORMATION
  Report Type: 
  Country: None (occurrence: None)
  Receive Date: 20120120
  Receipt Date: 20111010
  Transmission Date: 20120608
  Serious: No
  Sender: FDA-Public Use
  Company Number: US-NOVEN-11US003389

PATIENT
  Sex: Female
  Weight: 102.95 kg

DRUGS (6)
  1. FENTANYL [Suspect]
     Indication: BACK PAIN
  2. REQUIP [Concomitant]
     Indication: RESTLESS LEGS SYNDROME
     Route: 048
  3. FENTANYL [Suspect]
     Indication: NECK PAIN
     Dosage: 100 UG, Q72H
     Route: 062
     Dates: start: 20100101
  4. XANAX [Concomitant]
     Indication: ANXIETY
     Dosage: 0.5 MG, PRN
     Route: 048
  5. FENTANYL [Suspect]
     Indication: PAIN IN EXTREMITY
  6. LYRICA [Concomitant]
     Indication: PRODUCT USED FOR UNKNOWN INDICATION
     Route: 048

REACTIONS (2)
  - DRUG ADMINISTRATION ERROR [None]
  - PRODUCT QUALITY ISSUE [None]
